FAERS Safety Report 16162762 (Version 1)
Quarter: 2019Q2

REPORT INFORMATION
  Report Type: Spontaneous
  Country: US (occurrence: US)
  Receive Date: 20190302
  Receipt Date: 20190302
  Transmission Date: 20190711
  Serious: Yes (Hospitalization)
  Sender: FDA-Public Use
  Company Number: None

PATIENT
  Age: 75 Year
  Sex: Male
  Weight: 55 kg

DRUGS (3)
  1. LEUCOVORIN CALCIUM. [Suspect]
     Active Substance: LEUCOVORIN CALCIUM
     Dates: end: 20190213
  2. 5-FLUOROURACIL (5-FU) [Suspect]
     Active Substance: FLUOROURACIL
     Dates: end: 20190214
  3. ELOXATIN [Suspect]
     Active Substance: OXALIPLATIN
     Dates: end: 20190213

REACTIONS (5)
  - Fall [None]
  - Hyponatraemia [None]
  - Leukocytosis [None]
  - Femur fracture [None]
  - Neuropathy peripheral [None]

NARRATIVE: CASE EVENT DATE: 20190214
